FAERS Safety Report 4477724-3 (Version None)
Quarter: 2004Q4

REPORT INFORMATION
  Report Type: 
  Country: None (occurrence: None)
  Receive Date: 20041014
  Receipt Date: 20041006
  Transmission Date: 20050328
  Serious: Yes (Death)
  Sender: FDA-Public Use
  Company Number: S04-USA-04304-01

PATIENT
  Age: 25 Year
  Sex: Female

DRUGS (8)
  1. LEXAPRO [Suspect]
     Indication: ANXIETY
     Dosage: 30 MG QD PO
     Route: 048
     Dates: start: 20040601, end: 20040704
  2. LEXAPRO [Suspect]
     Indication: DEPRESSION
     Dosage: 30 MG QD PO
     Route: 048
     Dates: start: 20040601, end: 20040704
  3. LEXAPRO [Suspect]
     Indication: ANXIETY
     Dosage: 10 MG QD PO
     Route: 048
     Dates: start: 20040401
  4. LEXAPRO [Suspect]
     Indication: DEPRESSION
     Dosage: 10 MG QD PO
     Route: 048
     Dates: start: 20040401
  5. LEXAPRO [Suspect]
     Indication: ANXIETY
     Dosage: 20 MG QD PO
     Route: 048
  6. LEXAPRO [Suspect]
     Indication: DEPRESSION
     Dosage: 20 MG QD PO
     Route: 048
  7. SEROQUEL [Suspect]
     Indication: DEPRESSION
     Dosage: 25 MG QD
     Dates: end: 20040704
  8. NEURONTIN [Concomitant]

REACTIONS (6)
  - ALCOHOL USE [None]
  - CARDIAC ARREST [None]
  - COMA [None]
  - DRUG SCREEN POSITIVE [None]
  - DYSPNOEA [None]
  - PULMONARY OEDEMA [None]
